FAERS Safety Report 15134978 (Version 1)
Quarter: 2018Q3

REPORT INFORMATION
  Report Type: Spontaneous
  Country: RO (occurrence: RO)
  Receive Date: 20180712
  Receipt Date: 20180712
  Transmission Date: 20181010
  Serious: Yes (Hospitalization, Other)
  Sender: FDA-Public Use
  Company Number: RO-AUROBINDO-AUR-APL-2018-034033

PATIENT
  Age: 35 Year

DRUGS (1)
  1. OLANZAPINE. [Suspect]
     Active Substance: OLANZAPINE
     Indication: MENTAL DISORDER
     Dosage: 5 MILLIGRAM, DOSE INCREASE OF UP TO 15 MG
     Route: 065
     Dates: start: 20150526, end: 20180614

REACTIONS (5)
  - Depressed mood [Not Recovered/Not Resolved]
  - Abnormal behaviour [Not Recovered/Not Resolved]
  - Anxiety [Not Recovered/Not Resolved]
  - Disease recurrence [Not Recovered/Not Resolved]
  - Delirium [Not Recovered/Not Resolved]
